FAERS Safety Report 8473239-6 (Version None)
Quarter: 2012Q2

REPORT INFORMATION
  Report Type: 
  Country: None (occurrence: None)
  Receive Date: 20120627
  Receipt Date: 20120620
  Transmission Date: 20120825
  Serious: Yes (Other)
  Sender: FDA-Public Use
  Company Number: NO-MERCK-1111NOR00006

PATIENT
  Age: 73 Year
  Sex: Female

DRUGS (1)
  1. FOSAMAX [Suspect]
     Indication: OSTEOPOROSIS
     Route: 048
     Dates: start: 19940101

REACTIONS (4)
  - ULNA FRACTURE [None]
  - PAIN IN EXTREMITY [None]
  - FEMUR FRACTURE [None]
  - OSTEOPENIA [None]
